FAERS Safety Report 9270563 (Version 2)
Quarter: 2013Q2

REPORT INFORMATION
  Report Type: Spontaneous
  Country: IT (occurrence: IT)
  Receive Date: 20130505
  Receipt Date: 20130514
  Transmission Date: 20140414
  Serious: Yes (Other)
  Sender: FDA-Public Use
  Company Number: PHHY2013IT042734

PATIENT
  Age: 37 Year
  Sex: Male

DRUGS (3)
  1. RIBAVIRIN [Suspect]
     Indication: CHRONIC HEPATITIS C
     Dosage: 1200 MG, DAILY
     Dates: start: 201103, end: 201109
  2. PEGINTERFERON ALFA-2A [Suspect]
     Indication: CHRONIC HEPATITIS C
     Dosage: 180 G, PER WEEK
     Dates: start: 201103, end: 201109
  3. ANGIOTENSIN II ANTAGONISTS [Concomitant]
     Indication: HYPERTENSION

REACTIONS (8)
  - Thrombocytopenia [Recovering/Resolving]
  - Leukopenia [Recovering/Resolving]
  - Interstitial lung disease [Recovering/Resolving]
  - Sarcoidosis [Recovering/Resolving]
  - Skin mass [Recovering/Resolving]
  - Pyrexia [Recovering/Resolving]
  - Dyspnoea exertional [Recovering/Resolving]
  - Arthralgia [Recovering/Resolving]
